FAERS Safety Report 18524264 (Version 2)
Quarter: 2021Q1

REPORT INFORMATION
  Report Type: Spontaneous
  Country: US (occurrence: US)
  Receive Date: 20201119
  Receipt Date: 20210225
  Transmission Date: 20210419
  Serious: Yes (Hospitalization)
  Sender: FDA-Public Use
  Company Number: US-TEVA-2020-US-1848954

PATIENT
  Age: 32 Year
  Sex: Female

DRUGS (8)
  1. DEXAMETHASONE. [Suspect]
     Active Substance: DEXAMETHASONE
     Indication: PRODUCT USED FOR UNKNOWN INDICATION
     Route: 042
  2. ALBUTEROL. [Concomitant]
     Active Substance: ALBUTEROL
     Indication: WHEEZING
     Dosage: 2 PUFFS EVERY 4 HOURS AS NEEDED
     Route: 055
  3. SUCCINYLCHOLINE [Suspect]
     Active Substance: SUCCINYLCHOLINE
     Indication: PRODUCT USED FOR UNKNOWN INDICATION
     Route: 065
  4. PROPOFOL. [Suspect]
     Active Substance: PROPOFOL
     Indication: INDUCTION AND MAINTENANCE OF ANAESTHESIA
     Dosage: IN 2 DIVIDED DOSES OVER 30 MINUTES
     Route: 065
  5. ONDANSETRON [Concomitant]
     Active Substance: ONDANSETRON
     Indication: PRODUCT USED FOR UNKNOWN INDICATION
     Route: 065
  6. LIDOCAINE. [Concomitant]
     Active Substance: LIDOCAINE
     Indication: PRODUCT USED FOR UNKNOWN INDICATION
     Route: 065
  7. MAGNESIUM CITRATE. [Concomitant]
     Active Substance: MAGNESIUM CITRATE
     Indication: BOWEL PREPARATION
     Route: 065
  8. SEVOFLURANE. [Suspect]
     Active Substance: SEVOFLURANE
     Indication: INDUCTION AND MAINTENANCE OF ANAESTHESIA
     Route: 065

REACTIONS (1)
  - Rhabdomyolysis [Recovered/Resolved]
